FAERS Safety Report 23595385 (Version 2)
Quarter: 2024Q2

REPORT INFORMATION
  Report Type: Spontaneous
  Country: US (occurrence: None)
  Receive Date: 20240305
  Receipt Date: 20240426
  Transmission Date: 20240715
  Serious: Yes (Hospitalization)
  Sender: FDA-Public Use
  Company Number: 2024A048325

PATIENT
  Age: 27904 Day
  Sex: Female
  Weight: 63 kg

DRUGS (30)
  1. TRUQAP [Suspect]
     Active Substance: CAPIVASERTIB
     Indication: Breast cancer metastatic
     Route: 048
     Dates: start: 20240212, end: 20240220
  2. PULMICORT TURBUHALER [Suspect]
     Active Substance: BUDESONIDE
     Dosage: INHALE 0.5 MG AS INSTRUCTED DAILY
     Route: 055
  3. ASPIRIN [Concomitant]
     Active Substance: ASPIRIN
     Dosage: TAKE 81 MG BY MOUTH DAILY
     Route: 048
  4. LIPITOR [Concomitant]
     Active Substance: ATORVASTATIN CALCIUM
     Dosage: TAKE 1 TABLET BY MOUTH AT BEDTIME
     Route: 048
  5. ALBUTEROL [Concomitant]
     Active Substance: ALBUTEROL
     Dosage: INHALE 2-4 PUFFS EVERY 4-6 HOURS AS NEEDED
     Route: 055
  6. ALBUTEROL [Concomitant]
     Active Substance: ALBUTEROL
     Dosage: INHALE 2-4 PUFFS EVERY 4-6 HOURS AS NEEDED
     Route: 055
  7. CETIRIZINE HCL [Concomitant]
     Active Substance: CETIRIZINE HYDROCHLORIDE
     Dosage: TAKE 2 TABLETS (4 MG TOTAL) BY MOUTH TWICE DAILY X 5 DAYS, THEN TAKE ONE TAB TWICE DAILY X 5 DAYS...
     Route: 048
  8. ZOLPIDEM [Concomitant]
     Active Substance: ZOLPIDEM TARTRATE
     Dosage: TAKE 0.5 TABS (2.5 MG TOTAL) BY MOUTH AT BEDTIME.
     Route: 048
  9. FULVESTRANT [Concomitant]
     Active Substance: FULVESTRANT
     Indication: Breast cancer female
     Dosage: 500 MG
     Dates: start: 20240212, end: 20240315
  10. ZYRTEC [Concomitant]
     Active Substance: CETIRIZINE HYDROCHLORIDE
     Dosage: TAKE 2 TABLETS (4 MG TOTAL) BY MOUTH TWICE DAILY X 5 DAYS, THEN TAKE ONE TAB TWICE DAILY X 5 DAYS...
     Route: 048
  11. LOMOTIL [Concomitant]
     Active Substance: ATROPINE SULFATE\DIPHENOXYLATE HYDROCHLORIDE
     Dosage: TAKE 1 TABLET BY MOUTH FOUR TIMES DAILY AS NEEDED FOR DIARRHEA
     Route: 048
  12. FLONASE [Concomitant]
     Active Substance: FLUTICASONE PROPIONATE
     Dosage: 2 SPRAYS IN EACH NOSTRIL DAILY
     Route: 045
  13. LASIX [Concomitant]
     Active Substance: FUROSEMIDE
     Dosage: 20 MG TAKE 1 TABLET BY MOUTH EVERY DAY
     Route: 048
  14. NEURONTIN [Concomitant]
     Active Substance: GABAPENTIN
     Dosage: 300 MG TAKE BY MOUTH DAILY
     Route: 048
  15. NORCO [Concomitant]
     Active Substance: ACETAMINOPHEN\HYDROCODONE BITARTRATE
     Dosage: TAKE 1 TABLET BY MOUTH EVERY 8 HOURS AS NEEDED FOR PAIN MAX OF 3000 MG ACETAMINOPHEN/24HRS
     Route: 048
  16. KEPPRA XR [Concomitant]
     Active Substance: LEVETIRACETAM
     Dosage: TAKE 2 TABS (1,000 MG TOTAL) BY MOUTH EVERY EVENING. DO NOT CUT, CRUSH, OR CHEW TABLETS
     Route: 048
  17. SYNTHROID [Concomitant]
     Active Substance: LEVOTHYROXINE SODIUM
     Dosage: TAKE 1 TABLET BY MOUTH DAILY IN THE MORNING ON EMPTY STOMACH
     Route: 048
  18. IMODIUM [Concomitant]
     Active Substance: LOPERAMIDE HYDROCHLORIDE
     Dosage: 2 MG, TAKE 4MG (2 CAPS) BY MOUTH AT ONSET OF DIARRHEA, THEN 1 CAP AFTER EACH LOOSE STOOL UNTIL DI...
     Route: 048
  19. MEDROL [Concomitant]
     Active Substance: METHYLPREDNISOLONE
     Dosage: 4 MG, TAKE BY MOUTH AS DIRECTED TAKE ACCORDING TO PACKAGE INSTRUCTIONS
     Route: 048
  20. METOPROLOL SUCCINATE [Concomitant]
     Active Substance: METOPROLOL SUCCINATE
     Dosage: TAKE 12.5 MG BY MOUTH DAILY
     Route: 048
  21. ONDANSETRON [Concomitant]
     Active Substance: ONDANSETRON
     Dosage: TAKE 4 MG BY MOUTH EVERY 8 HOURS AS NEEDED FOR NAUSEA
     Route: 048
  22. ONDANSETRON [Concomitant]
     Active Substance: ONDANSETRON
     Dosage: TAKE 1 TABLET (8 MG TOTAL) BY MOUTH EVERY 8 HOURS AS NEEDED FOR NAUSEANOMITING
     Route: 048
  23. ZOFRAN ODT [Concomitant]
     Active Substance: ONDANSETRON HYDROCHLORIDE
     Dosage: TAKE 4 MG BY MOUTH EVERY 8 HOURS AS NEEDED FOR NAUSEA
     Route: 048
  24. ZOFRAN ODT [Concomitant]
     Active Substance: ONDANSETRON HYDROCHLORIDE
     Dosage: TAKE 1 TABLET (8 MG TOTAL) BY MOUTH EVERY 8 HOURS AS NEEDED FOR NAUSEANOMITING
     Route: 048
  25. POTASSIUM CHLORIDE [Concomitant]
     Active Substance: POTASSIUM CHLORIDE
     Dosage: TAKE 1 TABLET BY MOUTH TWICE DAILY
     Route: 048
  26. PREVIDENT [Concomitant]
     Active Substance: SODIUM FLUORIDE
     Dosage: 1.1% DENT DENTAL PASTE
     Route: 004
  27. COMPAZINE [Concomitant]
     Active Substance: PROCHLORPERAZINE MALEATE
     Dosage: TAKE 1 TAB (10 MG TOTAL) BY MOUTH THREE TIMES DAILY AS NEEDED FOR NAUSEA
     Route: 048
  28. AZELASTINE [Concomitant]
     Active Substance: AZELASTINE\AZELASTINE HYDROCHLORIDE
     Dosage: 137 MCG (0.1 %) ,2 SPRAYS IN BOTH NOSTRILS TWICE DAILY
     Route: 045
  29. AZELASTINE [Concomitant]
     Active Substance: AZELASTINE\AZELASTINE HYDROCHLORIDE
     Dosage: 137 MCG (0.1 %) ,1 SPRAY IN BOTH NOSTRILS DAILY AS NEEDED FOR ALLERGIES
     Route: 045
  30. AMBIEN [Concomitant]
     Active Substance: ZOLPIDEM TARTRATE
     Dosage: TAKE 0.5 TABS (2.5 MG TOTAL) BY MOUTH AT BEDTIME
     Route: 048

REACTIONS (3)
  - Skin reaction [Recovering/Resolving]
  - Rash [Recovered/Resolved with Sequelae]
  - Diarrhoea [Recovered/Resolved with Sequelae]

NARRATIVE: CASE EVENT DATE: 20240214
